FAERS Safety Report 7338138-1 (Version None)
Quarter: 2011Q1

REPORT INFORMATION
  Report Type: 
  Country: None (occurrence: None)
  Receive Date: 20110308
  Receipt Date: 20110228
  Transmission Date: 20110831
  Serious: Yes (Other)
  Sender: FDA-Public Use
  Company Number: US-US-EMD SERONO, INC.-7041270

PATIENT
  Sex: Female

DRUGS (3)
  1. REBIF [Suspect]
     Indication: PRODUCT USED FOR UNKNOWN INDICATION
     Route: 058
     Dates: start: 20100113
  2. BACTROBAN [Suspect]
     Indication: CHEMICAL INJURY
     Dates: start: 20110101, end: 20110201
  3. BACTRIM [Suspect]
     Indication: CHEMICAL INJURY
     Dates: start: 20110101, end: 20110201

REACTIONS (3)
  - TOXICITY TO VARIOUS AGENTS [None]
  - INJECTION SITE REACTION [None]
  - CHEMICAL INJURY [None]
